FAERS Safety Report 13031208 (Version 1)
Quarter: 2016Q4

REPORT INFORMATION
  Report Type: Spontaneous
  Country: US (occurrence: US)
  Receive Date: 20161215
  Receipt Date: 20161215
  Transmission Date: 20170207
  Serious: Yes (Hospitalization, Other)
  Sender: FDA-Public Use
  Company Number: US-GLAXOSMITHKLINE-US2016185412

PATIENT
  Age: 57 Year
  Sex: Female

DRUGS (6)
  1. BUPROPION. [Suspect]
     Active Substance: BUPROPION
  2. CLONAZEPAM. [Suspect]
     Active Substance: CLONAZEPAM
  3. AMANTADINE [Suspect]
     Active Substance: AMANTADINE
  4. TRAZODONE [Suspect]
     Active Substance: TRAZODONE HYDROCHLORIDE
  5. PERPHENAZINE. [Suspect]
     Active Substance: PERPHENAZINE
  6. MEMANTINE. [Suspect]
     Active Substance: MEMANTINE

REACTIONS (2)
  - Encephalopathy [Recovered/Resolved]
  - Urinary tract infection [Unknown]
